FAERS Safety Report 7328011-7 (Version None)
Quarter: 2011Q1

REPORT INFORMATION
  Report Type: 
  Country: None (occurrence: None)
  Receive Date: 20110223
  Receipt Date: 20110120
  Transmission Date: 20110831
  Serious: Yes (Death)
  Sender: FDA-Public Use
  Company Number: AE11-015-13

PATIENT
  Sex: Female

DRUGS (3)
  1. SALICYLATE [Suspect]
  2. LORCET-HD [Suspect]
  3. ETHANOL [Suspect]

REACTIONS (2)
  - MULTIPLE DRUG OVERDOSE [None]
  - SUICIDAL IDEATION [None]
